FAERS Safety Report 7706985-X (Version None)
Quarter: 2011Q3

REPORT INFORMATION
  Report Type: 
  Country: None (occurrence: None)
  Receive Date: 20110824
  Receipt Date: 20110823
  Transmission Date: 20111222
  Serious: No
  Sender: FDA-Public Use
  Company Number: US-PFIZER INC-2011195383

PATIENT
  Age: 45 Year
  Sex: Female
  Weight: 67.1 kg

DRUGS (3)
  1. DEPO-PROVERA [Suspect]
     Indication: MENORRHAGIA
  2. SYNTHROID [Concomitant]
     Indication: THYROID DISORDER
     Dosage: 1.25 MG, UNK
  3. DEPO-PROVERA [Suspect]
     Indication: OFF LABEL USE
     Dosage: UNK
     Dates: start: 20110610, end: 20110610

REACTIONS (1)
  - DRUG INEFFECTIVE FOR UNAPPROVED INDICATION [None]
